FAERS Safety Report 8306649-8 (Version None)
Quarter: 2012Q1

REPORT INFORMATION
  Report Type: 
  Country: None (occurrence: None)
  Receive Date: 20120326
  Receipt Date: 20110418
  Transmission Date: 20120608
  Serious: Yes (Other)
  Sender: FDA-Public Use
  Company Number: PHHY2011US32836

PATIENT
  Sex: Male

DRUGS (8)
  1. ZOLOFT (SERTRALINE HYDROCHLORIDE)(SERTRALINE HYDROCHLORIDE) TABLET [Concomitant]
  2. FINASTERIDE (FINASTERIDE) TABLET [Concomitant]
  3. TASIGNA [Suspect]
     Indication: CHRONIC MYELOID LEUKAEMIA
     Dosage: 150 MG, BID, ORAL
     Route: 048
  4. STALEVO (CARBIDOPA, ENTACAPONE, LEVODOPA) TABLET [Concomitant]
  5. TOPROL-XL [Concomitant]
  6. ALTACE (RAMIPRIL) CAPSULE [Concomitant]
  7. OXYBUTYN (OXYBUTYNIN HYDROCHLORIDE) TABLET [Concomitant]
  8. DIGOXIN [Concomitant]

REACTIONS (6)
  - TREMOR [None]
  - OROPHARYNGEAL PAIN [None]
  - PAIN [None]
  - FAECES PALE [None]
  - INSOMNIA [None]
  - HEADACHE [None]
